FAERS Safety Report 15431481 (Version 1)
Quarter: 2018Q3

REPORT INFORMATION
  Report Type: Spontaneous
  Country: US (occurrence: US)
  Receive Date: 20180926
  Receipt Date: 20180926
  Transmission Date: 20181010
  Serious: No
  Sender: FDA-Public Use
  Company Number: US-PFIZER INC-2018383305

PATIENT
  Age: 59 Year
  Sex: Female
  Weight: 55 kg

DRUGS (8)
  1. MIRTAZAPINE. [Concomitant]
     Active Substance: MIRTAZAPINE
     Indication: ANXIETY
     Dosage: 15 MG, 1X/DAY(15MG TABLET ONCE DAILY AT BEDTIME)
  2. LISINOPRIL. [Concomitant]
     Active Substance: LISINOPRIL
     Indication: HYPERTENSION
     Dosage: 10 MG, 1X/DAY
     Route: 048
  3. CELEBREX [Suspect]
     Active Substance: CELECOXIB
     Indication: RHEUMATOID ARTHRITIS
     Dosage: UNK, 2X/DAY
  4. PRIMIDONE. [Concomitant]
     Active Substance: PRIMIDONE
     Indication: TREMOR
     Dosage: 50 MG, 3X/DAY
  5. BUTALBITAL, ACETAMINOPHEN, AND CAFFEINE [Concomitant]
     Active Substance: ACETAMINOPHEN\BUTALBITAL\CAFFEINE
     Indication: HEADACHE
     Dosage: [BUTALBITAL 50, CAFFEINE 325, PARACETAMOL 40] CAP LIB, 1 CAPSULE EVERY 6 HOURS AS NEEDED)
  6. PENTAZOCINE/NALOXONE [Concomitant]
     Active Substance: NALOXONE\PENTAZOCINE
     Indication: PAIN
     Dosage: TABLET, 4 TIMES DAILY AS NEEDED FOR PAIN
  7. TRAZODONE [Concomitant]
     Active Substance: TRAZODONE HYDROCHLORIDE
     Indication: SLEEP DISORDER
     Dosage: 300 MG, 1X/DAY(300MG ONCE DAILY AT BEDTIME)
  8. CELEBREX [Suspect]
     Active Substance: CELECOXIB
     Dosage: 200 MG, 1X/DAY
     Route: 048

REACTIONS (4)
  - Fibromyalgia [Not Recovered/Not Resolved]
  - Back pain [Not Recovered/Not Resolved]
  - Drug dose omission [Not Recovered/Not Resolved]
  - Condition aggravated [Not Recovered/Not Resolved]

NARRATIVE: CASE EVENT DATE: 201807
